FAERS Safety Report 23981988 (Version 1)
Quarter: 2024Q2

REPORT INFORMATION
  Report Type: Spontaneous
  Country: US (occurrence: None)
  Receive Date: 20240617
  Receipt Date: 20240617
  Transmission Date: 20240716
  Serious: Yes (Hospitalization)
  Sender: FDA-Public Use
  Company Number: None

PATIENT
  Sex: Male

DRUGS (2)
  1. NUBEQA [Suspect]
     Active Substance: DAROLUTAMIDE
     Indication: Prostate cancer
     Dosage: FREQUENCY : TWICE A DAY;?
     Route: 048
     Dates: start: 202404
  2. XTANDI [Concomitant]
     Active Substance: ENZALUTAMIDE

REACTIONS (5)
  - Pruritus [None]
  - Skin atrophy [None]
  - Asthenia [None]
  - Fatigue [None]
  - Urinary tract infection [None]
